FAERS Safety Report 19831076 (Version 1)
Quarter: 2021Q3

REPORT INFORMATION
  Report Type: Spontaneous
  Country: US (occurrence: US)
  Receive Date: 20210915
  Receipt Date: 20210915
  Transmission Date: 20211014
  Serious: No
  Sender: FDA-Public Use
  Company Number: None

PATIENT
  Age: 40 Year
  Sex: Female
  Weight: 85.5 kg

DRUGS (13)
  1. BUSPIRON [Concomitant]
  2. BABY ASPIRIN [Concomitant]
     Active Substance: ASPIRIN
  3. VITAMIN B COMPLEX [Concomitant]
     Active Substance: CYANOCOBALAMIN\DEXPANTHENOL\NIACINAMIDE\PYRIDOXINE HYDROCHLORIDE\RIBOFLAVIN 5^-PHOSPHATE SODIUM\THIAMINE HYDROCHLORIDE\VITAMIN B COMPLEX
  4. LOSARTAN. [Concomitant]
     Active Substance: LOSARTAN
  5. ZINC. [Concomitant]
     Active Substance: ZINC
  6. VITAMIN D [Concomitant]
     Active Substance: VITAMIN D NOS
  7. JUNEL [Concomitant]
     Active Substance: ETHINYL ESTRADIOL\NORETHINDRONE ACETATE
  8. ZINC. [Concomitant]
     Active Substance: ZINC
  9. PEPCID [Concomitant]
     Active Substance: FAMOTIDINE
  10. VITAMIN C [Concomitant]
     Active Substance: ASCORBIC ACID
  11. CRESTOR [Concomitant]
     Active Substance: ROSUVASTATIN CALCIUM
  12. LEXAPRO [Concomitant]
     Active Substance: ESCITALOPRAM OXALATE
  13. REGEN?COV [Suspect]
     Active Substance: CASIRIVIMAB\IMDEVIMAB
     Indication: COVID-19
     Dosage: ?          OTHER FREQUENCY:ONCE 30 MINUTES;?
     Route: 042

REACTIONS (4)
  - Eye swelling [None]
  - Urticaria [None]
  - Pruritus [None]
  - Erythema [None]

NARRATIVE: CASE EVENT DATE: 20210822
